FAERS Safety Report 12165454 (Version 3)
Quarter: 2016Q1

REPORT INFORMATION
  Report Type: Report from Study
  Country: FR (occurrence: FR)
  Receive Date: 20160309
  Receipt Date: 20160328
  Transmission Date: 20160526
  Serious: Yes (Hospitalization, Other)
  Sender: FDA-Public Use
  Company Number: PHHY2016FR031323

PATIENT
  Age: 70 Year
  Sex: Female

DRUGS (2)
  1. AROMASINE [Concomitant]
     Active Substance: EXEMESTANE
     Indication: BREAST CANCER
     Dosage: 25 MG, UNK
     Route: 048
     Dates: start: 20151113, end: 20160226
  2. AFINITOR [Suspect]
     Active Substance: EVEROLIMUS
     Indication: BREAST CANCER
     Dosage: 5 MG, UNK
     Route: 048
     Dates: start: 20151231, end: 20160226

REACTIONS (3)
  - Femoral neck fracture [Recovered/Resolved]
  - Malignant neoplasm progression [Unknown]
  - Fall [Unknown]

NARRATIVE: CASE EVENT DATE: 20160106
